FAERS Safety Report 23483579 (Version 3)
Quarter: 2025Q1

REPORT INFORMATION
  Report Type: Spontaneous
  Country: US (occurrence: US)
  Receive Date: 20240205
  Receipt Date: 20250325
  Transmission Date: 20250408
  Serious: No
  Sender: PFIZER
  Company Number: US-PFIZER INC-202400031392

PATIENT
  Age: 66 Year
  Sex: Male
  Weight: 92.99 kg

DRUGS (4)
  1. VYNDAMAX [Suspect]
     Active Substance: TAFAMIDIS
     Indication: Dilated cardiomyopathy
     Dosage: 61 MG, 1X/DAY
  2. VYNDAMAX [Suspect]
     Active Substance: TAFAMIDIS
     Indication: Amyloidosis
  3. TRELEGY ELLIPTA [Concomitant]
     Active Substance: FLUTICASONE FUROATE\UMECLIDINIUM BROMIDE\VILANTEROL TRIFENATATE
  4. VENTOLIN [Concomitant]
     Active Substance: ALBUTEROL SULFATE

REACTIONS (7)
  - Somnolence [Unknown]
  - Carpal tunnel syndrome [Unknown]
  - Asthenia [Unknown]
  - Fatigue [Unknown]
  - Cardiac disorder [Unknown]
  - Migraine [Unknown]
  - Asthma [Unknown]
